FAERS Safety Report 16325660 (Version 1)
Quarter: 2019Q2

REPORT INFORMATION
  Report Type: Spontaneous
  Country: US (occurrence: US)
  Receive Date: 20190517
  Receipt Date: 20190517
  Transmission Date: 20190711
  Serious: No
  Sender: FDA-Public Use
  Company Number: US-B.I. PHARMACEUTICALS,INC./RIDGEFIELD-2019-BI-021111

PATIENT
  Sex: Male

DRUGS (2)
  1. COMBIVENT [Suspect]
     Active Substance: ALBUTEROL SULFATE\IPRATROPIUM BROMIDE
     Indication: CHRONIC OBSTRUCTIVE PULMONARY DISEASE
     Dosage: COMBIVENT INHALATION AEROSOL?STRENGTH: 18 MCG / 103 MCG; FORMULATION: INHALATION AEROSOL
     Route: 055
     Dates: start: 2016
  2. COMBIVENT [Suspect]
     Active Substance: ALBUTEROL SULFATE\IPRATROPIUM BROMIDE
     Dosage: COMBIVENT RESPIMAT INHALATION SPRAY?STRENGTH: 20 MCG / 100 MCG; FORMULATION: INHALATION SPRAY
     Route: 055

REACTIONS (7)
  - Decreased activity [Unknown]
  - Obstructive airways disorder [Unknown]
  - Asthma [Unknown]
  - Pain [Unknown]
  - Anxiety [Unknown]
  - Dyspnoea [Unknown]
  - Emotional disorder [Unknown]
